FAERS Safety Report 5094261-6 (Version None)
Quarter: 2006Q3

REPORT INFORMATION
  Report Type: 
  Country: None (occurrence: None)
  Receive Date: 20060831
  Receipt Date: 20060802
  Transmission Date: 20061208
  Serious: Yes (Life-Threatening, Disabling)
  Sender: FDA-Public Use
  Company Number: JP-JPN-A200602932

PATIENT
  Age: 50 Year
  Sex: Female
  Weight: 72 kg

DRUGS (9)
  1. PAXIL [Suspect]
     Indication: ANXIETY
     Dosage: 20MG TWICE PER DAY
     Route: 048
     Dates: start: 20020101, end: 20060613
  2. ZYPREXA [Suspect]
     Indication: DELUSION
     Route: 048
     Dates: start: 20050728, end: 20060613
  3. RISPERDAL [Suspect]
     Indication: ANXIETY
     Route: 048
     Dates: start: 20020101, end: 20060613
  4. SOLANAX [Suspect]
     Indication: ANXIETY
     Dosage: .4MG TWICE PER DAY
     Route: 048
     Dates: start: 20020101, end: 20060613
  5. CONSTAN [Concomitant]
     Route: 048
  6. AKINETON [Concomitant]
     Indication: PARKINSONISM
     Dosage: .3G PER DAY
     Route: 048
     Dates: start: 20020101, end: 20060613
  7. ARTANE [Concomitant]
     Indication: PARKINSONISM
     Dosage: .2G PER DAY
     Route: 048
     Dates: start: 20050223, end: 20060613
  8. ACINON [Concomitant]
     Indication: OBESITY
     Dosage: 300MG PER DAY
     Route: 048
     Dates: start: 20060310, end: 20060613
  9. DEPAS [Concomitant]
     Indication: ANXIETY
     Route: 048
     Dates: start: 20050901, end: 20060613

REACTIONS (5)
  - DRUG WITHDRAWAL SYNDROME [None]
  - HYPONATRAEMIA [None]
  - INAPPROPRIATE ANTIDIURETIC HORMONE SECRETION [None]
  - MALAISE [None]
  - NEUROLEPTIC MALIGNANT SYNDROME [None]
